FAERS Safety Report 5405377-6 (Version None)
Quarter: 2007Q3

REPORT INFORMATION
  Report Type: 
  Country: None (occurrence: None)
  Receive Date: 20070803
  Receipt Date: 20070724
  Transmission Date: 20080115
  Serious: Yes (Other)
  Sender: FDA-Public Use
  Company Number: FR-PFIZER INC-2006114337

PATIENT
  Sex: Female
  Weight: 49.5 kg

DRUGS (14)
  1. SU-011,248 [Suspect]
     Indication: METASTATIC RENAL CELL CARCINOMA
     Route: 048
     Dates: start: 20060309, end: 20060405
  2. SU-011,248 [Suspect]
     Route: 048
     Dates: start: 20060517, end: 20060906
  3. ZOLEDRONIC ACID [Concomitant]
     Route: 042
     Dates: start: 20060519, end: 20060824
  4. DARBEPOETIN ALFA [Concomitant]
     Route: 042
     Dates: start: 20060519, end: 20060830
  5. FENTANYL [Concomitant]
     Route: 048
     Dates: start: 20060308
  6. DOMPERIDONE [Concomitant]
     Route: 048
     Dates: start: 20060906
  7. ACTISKENAN [Concomitant]
     Route: 048
     Dates: start: 20060308, end: 20060809
  8. CHLORHEXIDINE GLUCONATE [Concomitant]
     Route: 048
     Dates: start: 20060425
  9. MACROGOL [Concomitant]
     Route: 048
     Dates: start: 20060425
  10. TRIMEBUTINE [Concomitant]
     Route: 048
     Dates: start: 20060425
  11. ACETAMINOPHEN [Concomitant]
     Route: 048
     Dates: start: 20060619, end: 20060909
  12. ONDANSETRON [Concomitant]
     Route: 048
     Dates: start: 20060619
  13. LOPERAMIDE HCL [Concomitant]
     Route: 048
     Dates: start: 20060906
  14. IRON [Concomitant]
     Route: 048
     Dates: start: 20060425, end: 20060830

REACTIONS (3)
  - CELL DEATH [None]
  - CHOLESTASIS [None]
  - CYTOLYTIC HEPATITIS [None]
